FAERS Safety Report 11977321 (Version 2)
Quarter: 2016Q1

REPORT INFORMATION
  Report Type: Spontaneous
  Country: AR (occurrence: AR)
  Receive Date: 20160129
  Receipt Date: 20160211
  Transmission Date: 20160526
  Serious: Yes (Hospitalization, Other)
  Sender: FDA-Public Use
  Company Number: AR-INCYTE CORPORATION-2016IN000373

PATIENT
  Sex: Male

DRUGS (2)
  1. JAKAFI [Suspect]
     Active Substance: RUXOLITINIB
     Indication: POLYCYTHAEMIA VERA
     Dosage: 15 MG, BID
     Route: 065
  2. JAKAFI [Suspect]
     Active Substance: RUXOLITINIB
     Dosage: 15 MG, QD

REACTIONS (6)
  - Haematocrit decreased [Unknown]
  - Confusional state [Unknown]
  - Blood potassium increased [Not Recovered/Not Resolved]
  - Splenomegaly [Recovering/Resolving]
  - Vascular compression [Unknown]
  - Disorientation [Unknown]

NARRATIVE: CASE EVENT DATE: 20160110
